FAERS Safety Report 19249418 (Version 2)
Quarter: 2021Q3

REPORT INFORMATION
  Report Type: Spontaneous
  Country: US (occurrence: US)
  Receive Date: 20210512
  Receipt Date: 20210813
  Transmission Date: 20211014
  Serious: No
  Sender: FDA-Public Use
  Company Number: US-MORPHOSYS US-2021-MOR000977-US

PATIENT
  Age: 80 Year
  Sex: Female

DRUGS (1)
  1. MONJUVI [Suspect]
     Active Substance: TAFASITAMAB-CXIX
     Indication: MARGINAL ZONE LYMPHOMA
     Dosage: SINGLE AGENT

REACTIONS (1)
  - Off label use [Unknown]
